FAERS Safety Report 20027760 (Version 1)
Quarter: 2021Q4

REPORT INFORMATION
  Report Type: Spontaneous
  Country: US (occurrence: None)
  Receive Date: 20211103
  Receipt Date: 20211103
  Transmission Date: 20220303
  Serious: Yes (Other)
  Sender: FDA-Public Use
  Company Number: US-MLMSERVICE-20211020-3175728-1

PATIENT
  Age: 67 Year
  Sex: Female

DRUGS (3)
  1. PREDNISONE [Suspect]
     Active Substance: PREDNISONE
     Indication: Mesenteric panniculitis
     Dosage: UNKNOWN
     Route: 065
  2. OCTREOTIDE [Concomitant]
     Active Substance: OCTREOTIDE
     Indication: Chylothorax
     Dosage: UNKNOWN
     Route: 065
  3. TAMOXIFEN [Concomitant]
     Active Substance: TAMOXIFEN
     Indication: Mesenteric panniculitis
     Dosage: UNKNOWN
     Route: 065

REACTIONS (1)
  - Hyperglycaemia [Unknown]
